FAERS Safety Report 8837010 (Version 1)
Quarter: 2012Q4

REPORT INFORMATION
  Report Type: 
  Country: US (occurrence: None)
  Receive Date: 20121011
  Receipt Date: 20121011
  Transmission Date: 20130627
  Serious: Yes (Hospitalization)
  Sender: FDA-Public Use
  Company Number: None

PATIENT
  Sex: Male
  Weight: 96 kg

DRUGS (6)
  1. RITUXIMAB [Suspect]
  2. VINCRISTINE SULFATE [Suspect]
  3. CYCLOPHOSPHAMIDE [Suspect]
  4. DOXORUBICIN HYDROCHLORIDE [Suspect]
  5. ETOPOSIDE [Suspect]
  6. PREDNISONE [Suspect]

REACTIONS (3)
  - Abdominal pain lower [None]
  - Diverticulitis [None]
  - Neutropenia [None]
